FAERS Safety Report 12070925 (Version 1)
Quarter: 2016Q1

REPORT INFORMATION
  Report Type: Report from Study
  Country: DE (occurrence: DE)
  Receive Date: 20160211
  Receipt Date: 20160211
  Transmission Date: 20160526
  Serious: Yes (Other)
  Sender: FDA-Public Use
  Company Number: DE-ABBVIE-16P-062-1554283-00

PATIENT
  Sex: Male

DRUGS (2)
  1. ISICOM [Concomitant]
     Active Substance: CARBIDOPA\LEVODOPA
     Indication: PRODUCT USED FOR UNKNOWN INDICATION
  2. DUODOPA [Suspect]
     Active Substance: CARBIDOPA\LEVODOPA
     Indication: PARKINSON^S DISEASE
     Dosage: MD 7.0 ML; CRD 3.5 ML/H; ED 2.0 ML
     Route: 050
     Dates: start: 20130110

REACTIONS (2)
  - Unintentional medical device removal [Not Recovered/Not Resolved]
  - Pneumonia [Not Recovered/Not Resolved]
